FAERS Safety Report 5216864-8 (Version None)
Quarter: 2007Q1

REPORT INFORMATION
  Report Type: 
  Country: None (occurrence: None)
  Receive Date: 20070119
  Receipt Date: 20070108
  Transmission Date: 20070707
  Serious: Yes (Hospitalization)
  Sender: FDA-Public Use
  Company Number: CLOF-10352

PATIENT
  Age: 11 Year
  Sex: Female
  Weight: 34 kg

DRUGS (12)
  1. CLOFARABINE [Suspect]
     Indication: ACUTE LYMPHOCYTIC LEUKAEMIA
     Dosage: 35 MG QD X 5 IV
     Route: 042
     Dates: start: 20061014, end: 20061018
  2. CLOFARABINE [Suspect]
     Indication: ACUTE LYMPHOCYTIC LEUKAEMIA
     Dosage: 35 MG QD IV
     Route: 042
     Dates: start: 20061201, end: 20061204
  3. ETOPOSIDE [Suspect]
     Indication: ACUTE LYMPHOCYTIC LEUKAEMIA
     Dosage: 120 MG QD X 5 IV
     Route: 042
     Dates: start: 20061014, end: 20061018
  4. ETOPOSIDE [Suspect]
     Indication: ACUTE LYMPHOCYTIC LEUKAEMIA
     Dosage: 120 MG QD IV
     Route: 042
     Dates: start: 20061201, end: 20061204
  5. CYCLOPHOSPHAMIDE [Suspect]
     Indication: ACUTE LYMPHOCYTIC LEUKAEMIA
     Dosage: 515 MG QD X 5 IV
     Route: 042
     Dates: start: 20061014, end: 20061018
  6. CYCLOPHOSPHAMIDE [Suspect]
     Indication: ACUTE LYMPHOCYTIC LEUKAEMIA
     Dosage: 515 MG QD IV
     Route: 042
     Dates: start: 20061201, end: 20061204
  7. BACTRIM [Concomitant]
  8. VORICONAZOLE [Concomitant]
  9. ACETAMINOPHEN [Concomitant]
  10. FILGRASTIM [Concomitant]
  11. NYSTATIN [Concomitant]
  12. ONDANSETRON [Concomitant]

REACTIONS (35)
  - ABDOMINAL ABSCESS [None]
  - ABDOMINAL PAIN [None]
  - ABDOMINAL TENDERNESS [None]
  - ASCITES [None]
  - BLOOD BILIRUBIN INCREASED [None]
  - BLOOD FIBRINOGEN INCREASED [None]
  - BLOOD POTASSIUM DECREASED [None]
  - CAECITIS [None]
  - CARDIOMEGALY [None]
  - CHOLECYSTITIS [None]
  - CHOLELITHIASIS [None]
  - CONSTIPATION [None]
  - DENTAL CARIES [None]
  - DRUG TOXICITY [None]
  - ENTERITIS [None]
  - ENTEROCOLITIS [None]
  - FEBRILE NEUTROPENIA [None]
  - FOCAL NODULAR HYPERPLASIA [None]
  - GASTROINTESTINAL OEDEMA [None]
  - HAEMATEMESIS [None]
  - HAEMATOCHEZIA [None]
  - HEPATIC INFECTION FUNGAL [None]
  - HEPATITIS [None]
  - HEPATOMEGALY [None]
  - HEPATOSPLENOMEGALY [None]
  - ILEUS PARALYTIC [None]
  - OSTEOPENIA [None]
  - PANCREATITIS [None]
  - PELVIC ABSCESS [None]
  - PERITONITIS [None]
  - PLATELET COUNT DECREASED [None]
  - PROCTALGIA [None]
  - PULMONARY CONGESTION [None]
  - SEPTIC SHOCK [None]
  - VENOOCCLUSIVE DISEASE [None]
